FAERS Safety Report 11908598 (Version 1)
Quarter: 2016Q1

REPORT INFORMATION
  Report Type: Report from Study
  Country: NL (occurrence: NL)
  Receive Date: 20160111
  Receipt Date: 20160111
  Transmission Date: 20160526
  Serious: Yes (Other)
  Sender: FDA-Public Use
  Company Number: NL-MYLANLABS-2016M1001071

PATIENT

DRUGS (2)
  1. LIDOCAINE. [Suspect]
     Active Substance: LIDOCAINE
     Dosage: 24 H INFUSION OF 6 MG/KG/H
     Route: 041
  2. LIDOCAINE. [Suspect]
     Active Substance: LIDOCAINE
     Indication: CONVULSION NEONATAL
     Route: 040

REACTIONS (2)
  - Bradycardia [Recovered/Resolved]
  - Electrocardiogram QRS complex prolonged [Recovered/Resolved]
